FAERS Safety Report 19046673 (Version 2)
Quarter: 2021Q1

REPORT INFORMATION
  Report Type: Report from Study
  Country: US (occurrence: US)
  Receive Date: 20210323
  Receipt Date: 20210324
  Transmission Date: 20210420
  Serious: No
  Sender: FDA-Public Use
  Company Number: NVSC2021US066460

PATIENT
  Sex: Male

DRUGS (1)
  1. COSENTYX [Suspect]
     Active Substance: SECUKINUMAB
     Indication: PSORIASIS
     Dosage: 300 MG, OTHER (EVERY WEEK X 5 WEEKS THEN EVERY 4)
     Route: 058
     Dates: start: 202012

REACTIONS (2)
  - Injection site pain [Unknown]
  - Product storage error [Unknown]
